FAERS Safety Report 9869704 (Version 2)
Quarter: 2014Q1

REPORT INFORMATION
  Report Type: Spontaneous
  Country: FR (occurrence: None)
  Receive Date: 20140203
  Receipt Date: 20140218
  Transmission Date: 20141002
  Serious: Yes (Hospitalization)
  Sender: FDA-Public Use
  Company Number: NGX_02226_2014

PATIENT
  Sex: Female

DRUGS (1)
  1. QUTENZA [Suspect]
     Indication: NEUROPATHY PERIPHERAL
     Dosage: 1 DF [PATCH, USED ON THE FEET AND THE ANKLES (BILATERAL)] TOPICAL)
     Route: 061
     Dates: start: 20140109, end: 20140109

REACTIONS (7)
  - Application site pain [None]
  - Feeling cold [None]
  - Angina pectoris [None]
  - Myocardial infarction [None]
  - Arteriosclerosis coronary artery [None]
  - Tachycardia [None]
  - Hypertensive crisis [None]
